FAERS Safety Report 6063592-5 (Version None)
Quarter: 2009Q1

REPORT INFORMATION
  Report Type: 
  Country: None (occurrence: None)
  Receive Date: 20090203
  Receipt Date: 20090123
  Transmission Date: 20090719
  Serious: Yes (Hospitalization)
  Sender: FDA-Public Use
  Company Number: US-BAXTER-2009BH001258

PATIENT
  Age: 7 Year
  Sex: Male

DRUGS (3)
  1. DIANEAL [Suspect]
     Indication: PERITONEAL DIALYSIS
     Route: 033
     Dates: start: 20081223, end: 20081230
  2. DIANEAL [Suspect]
     Route: 033
     Dates: start: 20081230, end: 20090126
  3. DIANEAL [Suspect]
     Route: 033
     Dates: start: 20090126

REACTIONS (1)
  - CATHETER RELATED COMPLICATION [None]
